FAERS Safety Report 6054087-3 (Version None)
Quarter: 2009Q1

REPORT INFORMATION
  Report Type: 
  Country: None (occurrence: None)
  Receive Date: 20090127
  Receipt Date: 20090116
  Transmission Date: 20090719
  Serious: Yes (Other)
  Sender: FDA-Public Use
  Company Number: NZ-ROCHE-608761

PATIENT

DRUGS (2)
  1. COPEGUS [Suspect]
     Route: 048
     Dates: start: 20070301
  2. INTERFERON [Concomitant]

REACTIONS (5)
  - FEBRILE NEUTROPENIA [None]
  - HAEMATURIA [None]
  - HAEMOLYTIC ANAEMIA [None]
  - NEUTROPENIA [None]
  - PANCYTOPENIA [None]
